FAERS Safety Report 10188725 (Version 1)
Quarter: 2014Q2

REPORT INFORMATION
  Report Type: Spontaneous
  Country: JP (occurrence: JP)
  Receive Date: 20140522
  Receipt Date: 20140522
  Transmission Date: 20141212
  Serious: Yes (Other)
  Sender: FDA-Public Use
  Company Number: JP-ASTRAZENECA-2014SE34645

PATIENT
  Age: 76 Year
  Sex: Male

DRUGS (3)
  1. CASODEX [Suspect]
     Indication: PROSTATE CANCER
     Route: 048
  2. ZOLADEX [Suspect]
     Indication: PROSTATE CANCER
     Route: 058
  3. LEUPLIN [Concomitant]
     Indication: PROSTATE CANCER
     Route: 058

REACTIONS (3)
  - Malignant neoplasm progression [Unknown]
  - Blood testosterone increased [Unknown]
  - Subcutaneous abscess [Unknown]
